FAERS Safety Report 8795125 (Version 1)
Quarter: 2012Q4

REPORT INFORMATION
  Report Type: 
  Country: US (occurrence: US)
  Receive Date: 20120917
  Receipt Date: 20120917
  Transmission Date: 20130627
  Serious: No
  Sender: FDA-Public Use
  Company Number: US-ASTRAZENECA-2012SE69889

PATIENT
  Age: 85 Year
  Sex: Female
  Weight: 65.3 kg

DRUGS (11)
  1. CRESTOR [Suspect]
     Indication: BLOOD CHOLESTEROL ABNORMAL
     Route: 048
  2. LOSARTAN [Concomitant]
     Indication: CARDIAC DISORDER
  3. MEGA RED [Concomitant]
     Indication: BONE DISORDER
  4. OMEPRAZOLE [Concomitant]
     Indication: GASTRIC DISORDER
  5. HALIPURINAL [Concomitant]
     Indication: GOUT
  6. VIT D [Concomitant]
     Indication: BONE DISORDER
  7. POTASSIUM [Concomitant]
     Indication: DIURETIC THERAPY
  8. LASIX [Concomitant]
     Indication: FLUID IMBALANCE
  9. MAG. OX [Concomitant]
     Indication: CARDIAC DISORDER
  10. CITRALIN [Concomitant]
  11. LOPRESSOR [Concomitant]
     Indication: CARDIAC DISORDER

REACTIONS (2)
  - Arthropathy [Unknown]
  - Arthralgia [Unknown]
